FAERS Safety Report 18875764 (Version 2)
Quarter: 2021Q1

REPORT INFORMATION
  Report Type: Report from Study
  Country: MX (occurrence: MX)
  Receive Date: 20210210
  Receipt Date: 20210305
  Transmission Date: 20210420
  Serious: Yes (Other)
  Sender: FDA-Public Use
  Company Number: NVSC2021MX026540

PATIENT
  Age: 39 Year
  Sex: Female
  Weight: 96 kg

DRUGS (2)
  1. TASIGNA [Suspect]
     Active Substance: NILOTINIB
     Indication: CHRONIC MYELOID LEUKAEMIA
     Dosage: 400 MG, BID
     Route: 048
  2. TASIGNA [Suspect]
     Active Substance: NILOTINIB
     Dosage: 800 MG, QD
     Route: 048

REACTIONS (10)
  - Headache [Unknown]
  - Inflammation [Recovering/Resolving]
  - Off label use [Unknown]
  - COVID-19 [Recovered/Resolved with Sequelae]
  - Chest pain [Unknown]
  - Arthralgia [Recovering/Resolving]
  - Feeling of despair [Unknown]
  - Dyspnoea [Unknown]
  - Parosmia [Unknown]
  - Agitation [Unknown]

NARRATIVE: CASE EVENT DATE: 202010
